FAERS Safety Report 20696994 (Version 1)
Quarter: 2022Q2

REPORT INFORMATION
  Report Type: Spontaneous
  Country: RO (occurrence: None)
  Receive Date: 20220411
  Receipt Date: 20220411
  Transmission Date: 20220721
  Serious: Yes (Hospitalization, Other)
  Sender: FDA-Public Use
  Company Number: RO-ROCHE-3070165

PATIENT
  Age: 62 Year
  Sex: Male

DRUGS (8)
  1. POLIVY [Suspect]
     Active Substance: POLATUZUMAB VEDOTIN-PIIQ
     Indication: Diffuse large B-cell lymphoma
     Route: 042
     Dates: start: 20220215, end: 20220221
  2. RITUXIMAB [Suspect]
     Active Substance: RITUXIMAB
     Indication: Diffuse large B-cell lymphoma
     Route: 041
     Dates: start: 20220215, end: 20220221
  3. BENDAMUSTINE [Concomitant]
     Active Substance: BENDAMUSTINE
     Indication: Diffuse large B-cell lymphoma
     Route: 042
     Dates: start: 20220215, end: 20220221
  4. OLANZAPINE [Concomitant]
     Active Substance: OLANZAPINE
  5. ASPIRIN [Concomitant]
     Active Substance: ASPIRIN
  6. ATORVASTATIN CALCIUM [Concomitant]
     Active Substance: ATORVASTATIN CALCIUM
  7. MODUXIN [Concomitant]
  8. TAMSULOSIN [Concomitant]
     Active Substance: TAMSULOSIN

REACTIONS (8)
  - Night sweats [Unknown]
  - Hypogammaglobulinaemia [Unknown]
  - Pyrexia [Unknown]
  - Bacteriuria [Unknown]
  - Medical device site haemorrhage [Unknown]
  - Blood fibrinogen increased [Unknown]
  - Breath sounds abnormal [Unknown]
  - Peripheral swelling [Unknown]
